FAERS Safety Report 7589980-3 (Version None)
Quarter: 2011Q3

REPORT INFORMATION
  Report Type: 
  Country: None (occurrence: None)
  Receive Date: 20110705
  Receipt Date: 20110627
  Transmission Date: 20111222
  Serious: Yes (Other)
  Sender: FDA-Public Use
  Company Number: A0904090A

PATIENT
  Age: 60 Year
  Sex: Female

DRUGS (2)
  1. NO CONCURRENT MEDICATION [Concomitant]
  2. TYKERB [Suspect]
     Indication: BREAST CANCER
     Dosage: 1500MG PER DAY
     Route: 048
     Dates: start: 20101015

REACTIONS (7)
  - DIARRHOEA [None]
  - ADVERSE EVENT [None]
  - DRUG INTERACTION [None]
  - PALMAR-PLANTAR ERYTHRODYSAESTHESIA SYNDROME [None]
  - PAIN IN EXTREMITY [None]
  - SKIN CHAPPED [None]
  - UPPER RESPIRATORY TRACT INFECTION [None]
